FAERS Safety Report 8041946-5 (Version None)
Quarter: 2012Q1

REPORT INFORMATION
  Report Type: 
  Country: None (occurrence: None)
  Receive Date: 20120112
  Receipt Date: 20120104
  Transmission Date: 20120608
  Serious: Yes (Hospitalization, Other)
  Sender: FDA-Public Use
  Company Number: PHHY2012FR000723

PATIENT
  Sex: Female

DRUGS (8)
  1. HYDROCHLOROTHIAZIDE [Suspect]
     Dosage: 12.5 MG, UNK
     Dates: end: 20111022
  2. ESIDRIX [Suspect]
     Dosage: 25 MG, QD
     Dates: end: 20111022
  3. LOSARTAN POTASSIUM [Concomitant]
     Dosage: 50 MG, UNK
  4. ESOMEPRAZOLE [Concomitant]
     Dosage: 40 MG, UNK
  5. CRESTOR [Concomitant]
     Dosage: 5 MG, UNK
  6. VOLTAREN [Suspect]
     Indication: BACK PAIN
     Dosage: UNK
     Dates: start: 20110920, end: 20111020
  7. LEVOTHYROXINE SODIUM [Concomitant]
     Dosage: 125 UG, QD
  8. SECTRAL [Concomitant]
     Dosage: 200 MG, QD

REACTIONS (9)
  - ANAEMIA [None]
  - MICROCYTOSIS [None]
  - HYPOKALAEMIA [None]
  - MELAENA [None]
  - ATRIAL FIBRILLATION [None]
  - ASTHENIA [None]
  - MEAN CELL VOLUME DECREASED [None]
  - ARRHYTHMIA [None]
  - DUODENITIS [None]
